FAERS Safety Report 6701880-7 (Version None)
Quarter: 2010Q2

REPORT INFORMATION
  Report Type: 
  Country: None (occurrence: None)
  Receive Date: 20100429
  Receipt Date: 20100423
  Transmission Date: 20101027
  Serious: Yes (Other)
  Sender: FDA-Public Use
  Company Number: US-ASTRAZENECA-2010SE18285

PATIENT
  Age: 55 Year
  Sex: Male

DRUGS (1)
  1. SYMBICORT [Suspect]
     Indication: BRONCHITIS
     Dosage: 320 MCG
     Route: 055
     Dates: start: 20100401

REACTIONS (1)
  - STEVENS-JOHNSON SYNDROME [None]
